FAERS Safety Report 4553984-5 (Version None)
Quarter: 2005Q1

REPORT INFORMATION
  Report Type: 
  Country: None (occurrence: None)
  Receive Date: 20050118
  Receipt Date: 20041213
  Transmission Date: 20050727
  Serious: Yes (Hospitalization, Other)
  Sender: FDA-Public Use
  Company Number: GB-ABBOTT-04P-167-0283706-00

PATIENT
  Age: 0 Year
  Sex: Female
  Weight: 2.9 kg

DRUGS (10)
  1. ERYTHROMYCIN [Suspect]
     Indication: INFECTION PROPHYLAXIS
     Route: 048
     Dates: start: 20041127, end: 20041203
  2. BENZYLPENICILLIN [Concomitant]
     Indication: INFECTION
     Dates: start: 20041115, end: 20041118
  3. GENTAMICIN [Concomitant]
     Indication: INFECTION
     Dates: start: 20041115, end: 20041118
  4. DEXAMETHASONE [Concomitant]
     Indication: PULMONARY OEDEMA
     Dates: start: 20041120, end: 20041122
  5. TRICLOFOS [Concomitant]
     Indication: SEDATION
     Dates: start: 20041119, end: 20041121
  6. DOMPERIDONE [Concomitant]
     Indication: REFLUX GASTRITIS
     Dates: start: 20041120, end: 20041128
  7. OMEPRAZOLE [Concomitant]
     Indication: REFLUX GASTRITIS
     Dates: start: 20041123, end: 20041128
  8. MORPHINE [Concomitant]
     Indication: SEDATION
     Dates: start: 20041116, end: 20041121
  9. AMOXIL [Concomitant]
     Indication: INFECTION
     Dates: start: 20041122, end: 20041124
  10. CHLORAL HYDRATE [Concomitant]
     Indication: SEDATION
     Dates: start: 20041120, end: 20041120

REACTIONS (4)
  - CONDITION AGGRAVATED [None]
  - RASH ERYTHEMATOUS [None]
  - RASH MACULO-PAPULAR [None]
  - STRIDOR [None]
